FAERS Safety Report 6359913-6 (Version None)
Quarter: 2009Q3

REPORT INFORMATION
  Report Type: 
  Country: None (occurrence: None)
  Receive Date: 20090917
  Receipt Date: 20090416
  Transmission Date: 20100115
  Serious: No
  Sender: FDA-Public Use
  Company Number: US-BRISTOL-MYERS SQUIBB COMPANY-14592794

PATIENT
  Age: 92 Year
  Sex: Female
  Weight: 58 kg

DRUGS (14)
  1. MEGACE ES [Suspect]
     Indication: WEIGHT DECREASED
     Route: 048
     Dates: start: 20090314
  2. MEGACE [Suspect]
  3. LISINOPRIL [Concomitant]
  4. ASPIRIN [Concomitant]
  5. CATAPRES [Concomitant]
  6. VITAMIN B-12 [Concomitant]
  7. PRILOSEC [Concomitant]
  8. SENOKOT [Concomitant]
  9. OSCAL [Concomitant]
  10. LACTASE [Concomitant]
  11. CARAFATE [Concomitant]
  12. TYLENOL (CAPLET) [Concomitant]
  13. ATIVAN [Concomitant]
  14. PHENERGAN [Concomitant]

REACTIONS (2)
  - DRUG INEFFECTIVE [None]
  - WEIGHT DECREASED [None]
